FAERS Safety Report 6279705-6 (Version None)
Quarter: 2009Q3

REPORT INFORMATION
  Report Type: 
  Country: None (occurrence: None)
  Receive Date: 20090723
  Receipt Date: 20090716
  Transmission Date: 20100115
  Serious: Yes (Life-Threatening, Hospitalization)
  Sender: FDA-Public Use
  Company Number: US-ROCHE-614880

PATIENT
  Sex: Male
  Weight: 83.9 kg

DRUGS (12)
  1. PEG-INTERFERON A-2A (RO 25-8310) [Suspect]
     Dosage: FORM: PRE FILLED SYRINGE.
     Route: 058
     Dates: start: 20081212
  2. PEG-INTERFERON A-2A (RO 25-8310) [Suspect]
     Dosage: DOSE REDUCED;
     Route: 058
     Dates: start: 20090311, end: 20090617
  3. RIBAPAK [Suspect]
     Dosage: DIVIDED DOSES, FREQUENCY: EVERY DAY
     Route: 048
     Dates: start: 20081212, end: 20090617
  4. LISINOPRIL [Concomitant]
     Indication: HYPERTENSION
     Route: 048
  5. ZANTAC [Concomitant]
     Route: 048
  6. MAG-OX [Concomitant]
     Route: 048
  7. OSCAL [Concomitant]
     Route: 048
  8. ALBUTEROL [Concomitant]
     Dosage: AS PER NEEDED
     Route: 055
  9. FOLIC ACID [Concomitant]
     Route: 048
  10. VITAMIN B1 TAB [Concomitant]
     Route: 048
  11. VICOPROFEN [Concomitant]
     Dosage: AS NECESSARY
     Route: 048
  12. FLUNISOLIDE [Concomitant]
     Dosage: FORM: SPRAY

REACTIONS (11)
  - ABDOMINAL PAIN UPPER [None]
  - BLOOD CREATINE PHOSPHOKINASE INCREASED [None]
  - CONFUSIONAL STATE [None]
  - EPISTAXIS [None]
  - HAEMOGLOBIN DECREASED [None]
  - OROPHARYNGEAL PAIN [None]
  - PANCYTOPENIA [None]
  - PYREXIA [None]
  - RED BLOOD CELL COUNT DECREASED [None]
  - STAPHYLOCOCCAL BACTERAEMIA [None]
  - WHITE BLOOD CELL COUNT DECREASED [None]
